FAERS Safety Report 12998671 (Version 1)
Quarter: 2016Q4

REPORT INFORMATION
  Report Type: Spontaneous
  Country: FR (occurrence: FR)
  Receive Date: 20161205
  Receipt Date: 20161205
  Transmission Date: 20170207
  Serious: Yes (Other)
  Sender: FDA-Public Use
  Company Number: FR-SA-2016SA212053

PATIENT
  Age: 33 Year
  Sex: Male

DRUGS (4)
  1. TYSABRI [Concomitant]
     Active Substance: NATALIZUMAB
     Dates: start: 20131116
  2. REBIF [Concomitant]
     Active Substance: INTERFERON BETA-1A
     Dosage: 44
     Dates: start: 2004, end: 2010
  3. LEMTRADA [Suspect]
     Active Substance: ALEMTUZUMAB
     Indication: RELAPSING-REMITTING MULTIPLE SCLEROSIS
     Route: 042
  4. COPAXONE [Concomitant]
     Active Substance: GLATIRAMER ACETATE

REACTIONS (5)
  - Motor dysfunction [Unknown]
  - Influenza [Unknown]
  - Cytokine release syndrome [Unknown]
  - Pyrexia [Unknown]
  - Lymphopenia [Not Recovered/Not Resolved]
